FAERS Safety Report 5298839-6 (Version None)
Quarter: 2007Q2

REPORT INFORMATION
  Report Type: 
  Country: None (occurrence: None)
  Receive Date: 20070410
  Receipt Date: 20070402
  Transmission Date: 20071010
  Serious: Yes (Death)
  Sender: FDA-Public Use
  Company Number: A0645597A

PATIENT
  Age: 72 Year
  Sex: Female

DRUGS (2)
  1. COREG CR [Suspect]
     Indication: HYPERTENSION
     Dosage: 20 MG/PER DAY/ORAL
     Route: 048
     Dates: start: 20070330
  2. IRBESARTAN [Concomitant]

REACTIONS (1)
  - HEART RATE DECREASED [None]
